FAERS Safety Report 7476800-0 (Version None)
Quarter: 2011Q2

REPORT INFORMATION
  Report Type: 
  Country: None (occurrence: None)
  Receive Date: 20110512
  Receipt Date: 20110504
  Transmission Date: 20111010
  Serious: Yes (Hospitalization)
  Sender: FDA-Public Use
  Company Number: US-BAXTER-2011BH014597

PATIENT
  Age: 48 Year
  Sex: Female

DRUGS (2)
  1. DIANEAL [Suspect]
     Indication: PERITONEAL DIALYSIS
     Route: 033
     Dates: start: 20110101, end: 20110501
  2. DIANEAL [Suspect]
     Route: 033
     Dates: start: 20110505

REACTIONS (2)
  - OVARIAN CYST RUPTURED [None]
  - CONSTIPATION [None]
